FAERS Safety Report 7306173-5 (Version None)
Quarter: 2011Q1

REPORT INFORMATION
  Report Type: 
  Country: None (occurrence: None)
  Receive Date: 20110222
  Receipt Date: 20110212
  Transmission Date: 20110831
  Serious: Yes (Other)
  Sender: FDA-Public Use
  Company Number: CA-JNJFOC-20110204502

PATIENT
  Sex: Male
  Weight: 80 kg

DRUGS (5)
  1. IMURAN [Concomitant]
  2. IRON [Concomitant]
  3. REMICADE [Suspect]
     Indication: CROHN'S DISEASE
     Route: 042
  4. VITAMIN B-12 [Concomitant]
  5. ASACOL [Concomitant]

REACTIONS (2)
  - JAUNDICE [None]
  - BLOOD BILIRUBIN INCREASED [None]
